FAERS Safety Report 25976282 (Version 2)
Quarter: 2025Q4

REPORT INFORMATION
  Report Type: Spontaneous
  Country: US (occurrence: US)
  Receive Date: 20251029
  Receipt Date: 20251111
  Transmission Date: 20260118
  Serious: No
  Sender: MYLAN
  Company Number: US-MYLANLABS-2025M1090110

PATIENT
  Sex: Female
  Weight: 86.18 kg

DRUGS (1)
  1. ESTRADIOL TRANSDERMAL SYSTEM [Suspect]
     Active Substance: ESTRADIOL
     Indication: Hormone replacement therapy
     Dosage: 0.1 MILLIGRAM, QD (PER DAY, TWICE WEEKLY)

REACTIONS (6)
  - Application site reaction [Unknown]
  - Application site irritation [Unknown]
  - Application site rash [Unknown]
  - Application site erythema [Unknown]
  - Application site pain [Unknown]
  - Product adhesion issue [Unknown]

NARRATIVE: CASE EVENT DATE: 20250101
